FAERS Safety Report 23884395 (Version 1)
Quarter: 2024Q2

REPORT INFORMATION
  Report Type: Spontaneous
  Country: JP (occurrence: JP)
  Receive Date: 20240522
  Receipt Date: 20240522
  Transmission Date: 20240716
  Serious: Yes (Hospitalization, Other)
  Sender: FDA-Public Use
  Company Number: JP-TEVA-VS-3199850

PATIENT

DRUGS (1)
  1. AZILECT [Suspect]
     Active Substance: RASAGILINE MESYLATE
     Indication: Parkinson^s disease
     Route: 048
     Dates: start: 20240422

REACTIONS (1)
  - Syncope [Unknown]

NARRATIVE: CASE EVENT DATE: 20240506
